FAERS Safety Report 16808888 (Version 1)
Quarter: 2019Q4

REPORT INFORMATION
  Report Type: Spontaneous
  Country: US (occurrence: US)
  Receive Date: 20190913
  Receipt Date: 20190913
  Transmission Date: 20200122
  Serious: Yes (Hospitalization)
  Sender: FDA-Public Use
  Company Number: None

PATIENT
  Age: 67 Year
  Sex: Female
  Weight: 58.5 kg

DRUGS (5)
  1. ESTROGEN PATCH [Concomitant]
     Active Substance: ESTRADIOL
  2. MULTIVITAMIN [Concomitant]
     Active Substance: VITAMINS
  3. VITAMIN D [Concomitant]
     Active Substance: VITAMIN D NOS
  4. RANITIDINE. [Concomitant]
     Active Substance: RANITIDINE
  5. PREGABALIN. [Suspect]
     Active Substance: PREGABALIN
     Indication: NEURALGIA
     Dosage: ?          QUANTITY:1 TABLET(S);?
     Route: 048
     Dates: start: 20190423, end: 20190627

REACTIONS (2)
  - Intestinal obstruction [None]
  - Product use complaint [None]

NARRATIVE: CASE EVENT DATE: 20190628
